FAERS Safety Report 14779875 (Version 1)
Quarter: 2018Q2

REPORT INFORMATION
  Report Type: Spontaneous
  Country: US (occurrence: US)
  Receive Date: 20180419
  Receipt Date: 20180419
  Transmission Date: 20180711
  Serious: Yes (Hospitalization)
  Sender: FDA-Public Use
  Company Number: US-TEVA-2018-US-882676

PATIENT
  Age: 16 Year
  Sex: Male

DRUGS (4)
  1. PREDNISONE. [Suspect]
     Active Substance: PREDNISONE
     Indication: ACUTE LYMPHOCYTIC LEUKAEMIA RECURRENT
     Dosage: INDUCTION CHEMOTHERAPY, 6 DAYS PRIOR
     Route: 065
  2. PEGYLATED L-ASPARAGINASE [Suspect]
     Active Substance: PEGASPARGASE
     Indication: ACUTE LYMPHOCYTIC LEUKAEMIA RECURRENT
     Dosage: INDUCTION CHEMOTHERAPY, 3 DAYS PRIOR
     Route: 065
  3. DAUNORUBICIN [Concomitant]
     Active Substance: DAUNORUBICIN
     Indication: ACUTE LYMPHOCYTIC LEUKAEMIA RECURRENT
     Dosage: INDUCTION CHEMOTHERAPY, 6 DAYS PRIOR
     Route: 065
  4. VINCRISTINE [Concomitant]
     Active Substance: VINCRISTINE
     Indication: ACUTE LYMPHOCYTIC LEUKAEMIA RECURRENT
     Dosage: INDUCTION CHEMOTHERAPY, 6 DAYS PRIOR
     Route: 065

REACTIONS (3)
  - Lethargy [None]
  - Mucosal dryness [None]
  - Hyperglycaemic hyperosmolar nonketotic syndrome [Recovered/Resolved]
